FAERS Safety Report 25017624 (Version 1)
Quarter: 2025Q1

REPORT INFORMATION
  Report Type: Spontaneous
  Country: US (occurrence: None)
  Receive Date: 20250226
  Receipt Date: 20250226
  Transmission Date: 20250409
  Serious: Yes (Hospitalization, Disabling)
  Sender: FDA-CTU
  Company Number: None

PATIENT

DRUGS (4)
  1. ZYPREXA [Suspect]
     Active Substance: OLANZAPINE
     Dates: start: 19901001, end: 20250103
  2. Lasix 20mg 1 day [Concomitant]
  3. Thyroid 50mg [Concomitant]
  4. High Blood 20mg [Concomitant]

REACTIONS (5)
  - Insomnia [None]
  - Dizziness [None]
  - Swelling [None]
  - Peripheral swelling [None]
  - Tremor [None]

NARRATIVE: CASE EVENT DATE: 19931201
